FAERS Safety Report 7786117-2 (Version None)
Quarter: 2011Q3

REPORT INFORMATION
  Report Type: 
  Country: None (occurrence: None)
  Receive Date: 20110929
  Receipt Date: 20110915
  Transmission Date: 20111222
  Serious: Yes (Other)
  Sender: FDA-Public Use
  Company Number: US-JNJFOC-20110908439

PATIENT
  Sex: Female

DRUGS (2)
  1. BENADRYL [Suspect]
     Route: 048
  2. BENADRYL [Suspect]
     Indication: ANTIDEPRESSANT THERAPY
     Dosage: NOW TAKING 700 MG IN 5 DIVIDED DOSES.
     Route: 048

REACTIONS (5)
  - INTENTIONAL OVERDOSE [None]
  - WITHDRAWAL SYNDROME [None]
  - CONFUSIONAL STATE [None]
  - DRUG ABUSE [None]
  - DRUG DEPENDENCE [None]
